FAERS Safety Report 7315442-4 (Version None)
Quarter: 2011Q1

REPORT INFORMATION
  Report Type: 
  Country: None (occurrence: None)
  Receive Date: 20110225
  Receipt Date: 20110225
  Transmission Date: 20110831
  Serious: Yes (Other)
  Sender: FDA-Public Use
  Company Number: D0070426A

PATIENT
  Sex: Female

DRUGS (1)
  1. VOTRIENT [Suspect]
     Dosage: 200MG TWICE PER DAY
     Route: 048
     Dates: start: 20101222

REACTIONS (2)
  - THROMBOSIS [None]
  - PULMONARY EMBOLISM [None]
